FAERS Safety Report 5065658-5 (Version None)
Quarter: 2006Q3

REPORT INFORMATION
  Report Type: 
  Country: None (occurrence: None)
  Receive Date: 20060731
  Receipt Date: 20060724
  Transmission Date: 20061208
  Serious: Yes (Hospitalization)
  Sender: FDA-Public Use
  Company Number: US-BRISTOL-MYERS SQUIBB COMPANY-13453196

PATIENT
  Age: 50 Year
  Sex: Male

DRUGS (6)
  1. ERBITUX [Suspect]
     Indication: OESOPHAGEAL ADENOCARCINOMA
     Route: 042
     Dates: start: 20060621
  2. PACLITAXEL [Suspect]
     Indication: OESOPHAGEAL ADENOCARCINOMA
     Route: 042
     Dates: start: 20060621
  3. CARBOPLATIN [Suspect]
     Indication: OESOPHAGEAL ADENOCARCINOMA
     Route: 042
     Dates: start: 20060621
  4. RADIATION THERAPY [Suspect]
     Indication: OESOPHAGEAL ADENOCARCINOMA
  5. AMOXICILLIN [Concomitant]
     Indication: INFECTION
     Dates: start: 20060714
  6. FLAGYL [Concomitant]
     Indication: INFECTION
     Dates: start: 20060714

REACTIONS (6)
  - COUGH [None]
  - DEHYDRATION [None]
  - DIZZINESS [None]
  - LUNG INFECTION [None]
  - ORAL INFECTION [None]
  - PYREXIA [None]
